FAERS Safety Report 9698947 (Version 1)
Quarter: 2013Q4

REPORT INFORMATION
  Report Type: Spontaneous
  Country: GB (occurrence: GB)
  Receive Date: 20131120
  Receipt Date: 20131120
  Transmission Date: 20140711
  Serious: Yes (Disabling, Other)
  Sender: FDA-Public Use
  Company Number: CHNY2013GB002575

PATIENT
  Sex: 0

DRUGS (3)
  1. LAMISIL [Suspect]
     Indication: ONYCHOMYCOSIS
     Dosage: 1 DF, ONCE/SINGLE
     Route: 061
  2. LAMISIL [Suspect]
     Indication: OFF LABEL USE
  3. LAMISIL [Suspect]
     Indication: FUNGAL INFECTION

REACTIONS (4)
  - Application site pain [Unknown]
  - Application site vesicles [Unknown]
  - Acne [Unknown]
  - Application site erythema [Unknown]
